FAERS Safety Report 25202877 (Version 1)
Quarter: 2025Q2

REPORT INFORMATION
  Report Type: Spontaneous
  Country: US (occurrence: None)
  Receive Date: 20250415
  Receipt Date: 20250415
  Transmission Date: 20250716
  Serious: Yes (Life-Threatening, Other)
  Sender: FDA-CTU
  Company Number: None

PATIENT
  Age: 39 Year
  Sex: Female

DRUGS (1)
  1. CIMZIA [Suspect]
     Active Substance: CERTOLIZUMAB PEGOL
     Indication: Rheumatoid arthritis
     Dates: start: 20231205

REACTIONS (6)
  - Skin infection [None]
  - Upper respiratory tract infection [None]
  - Rash [None]
  - Back pain [None]
  - Therapy cessation [None]
  - Social problem [None]
